FAERS Safety Report 10253516 (Version 2)
Quarter: 2014Q3

REPORT INFORMATION
  Report Type: Spontaneous
  Country: None (occurrence: CA)
  Receive Date: 20140623
  Receipt Date: 20140722
  Transmission Date: 20150326
  Serious: Yes (Other)
  Sender: FDA-Public Use
  Company Number: 2014SP001951

PATIENT
  Age: 32 Year
  Sex: Male

DRUGS (2)
  1. LATUDA [Suspect]
     Active Substance: LURASIDONE HYDROCHLORIDE
     Indication: SCHIZOPHRENIA, PARANOID TYPE
     Route: 048
     Dates: start: 20140506
  2. ABILIFY [Concomitant]
     Active Substance: ARIPIPRAZOLE
     Dates: start: 2009, end: 201405

REACTIONS (22)
  - Hepatic enzyme increased [Recovered/Resolved]
  - Diabetic hyperosmolar coma [Recovered/Resolved]
  - Blood pH decreased [Recovered/Resolved]
  - Decubitus ulcer [Not Recovered/Not Resolved]
  - Hypophosphataemia [Recovered/Resolved]
  - Loss of consciousness [Recovered/Resolved]
  - Renal failure acute [Recovered/Resolved]
  - Glycosylated haemoglobin increased [Recovered/Resolved]
  - Fatigue [Recovered/Resolved]
  - Thirst [Recovered/Resolved]
  - Hyperkalaemia [Recovered/Resolved]
  - Troponin T increased [Recovered/Resolved]
  - Blood osmolarity increased [Recovered/Resolved]
  - Hypokalaemia [Recovered/Resolved]
  - Eating disorder [Not Recovered/Not Resolved]
  - Convulsion [Recovered/Resolved]
  - Electrocardiogram QT prolonged [Recovered/Resolved]
  - Blood creatine phosphokinase increased [Recovered/Resolved]
  - Body temperature increased [Recovered/Resolved]
  - Tonic clonic movements [Recovered/Resolved]
  - Oropharyngeal pain [Recovered/Resolved]
  - Blood glucose increased [Recovered/Resolved]

NARRATIVE: CASE EVENT DATE: 20140531
